FAERS Safety Report 9352987 (Version 1)
Quarter: 2013Q2

REPORT INFORMATION
  Report Type: Report from Study
  Country: TR (occurrence: TR)
  Receive Date: 20130618
  Receipt Date: 20130618
  Transmission Date: 20140414
  Serious: Yes (Disabling)
  Sender: FDA-Public Use
  Company Number: PHHY2013TR061507

PATIENT
  Age: 74 Year
  Sex: Female

DRUGS (1)
  1. TASIGNA [Suspect]
     Indication: CHRONIC MYELOID LEUKAEMIA
     Dosage: 800 MG, DAILY
     Route: 048
     Dates: start: 20101223

REACTIONS (2)
  - Fall [Not Recovered/Not Resolved]
  - Hip fracture [Not Recovered/Not Resolved]
